FAERS Safety Report 25470836 (Version 1)
Quarter: 2025Q2

REPORT INFORMATION
  Report Type: Spontaneous
  Country: US (occurrence: US)
  Receive Date: 20250624
  Receipt Date: 20250624
  Transmission Date: 20250717
  Serious: Yes (Other)
  Sender: ROCHE
  Company Number: US-ROCHE-10000317029

PATIENT
  Sex: Male

DRUGS (1)
  1. OCREVUS ZUNOVO [Suspect]
     Active Substance: HYALURONIDASE-OCSQ\OCRELIZUMAB
     Indication: Multiple sclerosis
     Route: 050

REACTIONS (2)
  - Injection related reaction [Unknown]
  - Rash [Unknown]
